FAERS Safety Report 16665349 (Version 3)
Quarter: 2019Q3

REPORT INFORMATION
  Report Type: Spontaneous
  Country: US (occurrence: US)
  Receive Date: 20190803
  Receipt Date: 20190904
  Transmission Date: 20191004
  Serious: No
  Sender: FDA-Public Use
  Company Number: PHEH2019US031483

PATIENT
  Age: 63 Year
  Sex: Male
  Weight: 96.3 kg

DRUGS (1)
  1. COSENTYX [Suspect]
     Active Substance: SECUKINUMAB
     Indication: PSORIASIS
     Dosage: 300 OT, UNK
     Route: 058
     Dates: start: 20190725

REACTIONS (6)
  - Pruritus [Recovering/Resolving]
  - Arthralgia [Not Recovered/Not Resolved]
  - Anaemia [Unknown]
  - Musculoskeletal stiffness [Recovering/Resolving]
  - Skin discolouration [Recovering/Resolving]
  - Skin exfoliation [Recovering/Resolving]

NARRATIVE: CASE EVENT DATE: 20190702
